FAERS Safety Report 16424697 (Version 2)
Quarter: 2019Q2

REPORT INFORMATION
  Report Type: Spontaneous
  Country: US (occurrence: US)
  Receive Date: 20190613
  Receipt Date: 20190620
  Transmission Date: 20190711
  Serious: No
  Sender: FDA-Public Use
  Company Number: US-AMGEN-USASP2019091054

PATIENT
  Age: 71 Year
  Sex: Female
  Weight: 83.45 kg

DRUGS (1)
  1. PROLIA [Suspect]
     Active Substance: DENOSUMAB
     Indication: OSTEOPOROSIS POSTMENOPAUSAL
     Dosage: 60 MILLIGRAM, Q6MO
     Route: 065
     Dates: start: 201706

REACTIONS (3)
  - Injection site pain [Recovered/Resolved]
  - Bone pain [Unknown]
  - Back pain [Unknown]

NARRATIVE: CASE EVENT DATE: 2019
